FAERS Safety Report 21161302 (Version 1)
Quarter: 2022Q3

REPORT INFORMATION
  Report Type: Spontaneous
  Country: US (occurrence: None)
  Receive Date: 20220801
  Receipt Date: 20220801
  Transmission Date: 20221027
  Serious: Yes (Other)
  Sender: FDA-Public Use
  Company Number: None

PATIENT
  Age: 70 Year
  Sex: Female
  Weight: 54 kg

DRUGS (4)
  1. MAGNESIUM CITRATE SALINE LAXATIVE [Suspect]
     Active Substance: MAGNESIUM CITRATE
     Indication: Constipation
     Dosage: OTHER STRENGTH : OZ;?OTHER FREQUENCY : EVERYDAY;?
     Route: 048
     Dates: start: 20210920, end: 20220728
  2. ASCORBIC ACID [Concomitant]
     Active Substance: ASCORBIC ACID
  3. vitamins d [Concomitant]
  4. one a day multi [Concomitant]

REACTIONS (2)
  - Abdominal pain [None]
  - Diarrhoea [None]

NARRATIVE: CASE EVENT DATE: 20210920
